FAERS Safety Report 7179950-1 (Version None)
Quarter: 2010Q4

REPORT INFORMATION
  Report Type: 
  Country: None (occurrence: None)
  Receive Date: 20101221
  Receipt Date: 20100330
  Transmission Date: 20110411
  Serious: No
  Sender: FDA-Public Use
  Company Number: US-PFIZER INC-2010041134

PATIENT
  Sex: Female

DRUGS (1)
  1. DIDREX [Suspect]
     Dosage: UNK
     Dates: start: 20100201

REACTIONS (3)
  - BURNING SENSATION [None]
  - ERYTHEMA [None]
  - SKIN IRRITATION [None]
